FAERS Safety Report 12161124 (Version 2)
Quarter: 2016Q1

REPORT INFORMATION
  Report Type: Report from Study
  Country: US (occurrence: US)
  Receive Date: 20160308
  Receipt Date: 20160324
  Transmission Date: 20160526
  Serious: Yes (Other)
  Sender: FDA-Public Use
  Company Number: US-GILEAD-2016-0202307

PATIENT
  Age: 56 Year
  Sex: Male

DRUGS (13)
  1. ZYRTEC [Concomitant]
     Active Substance: CETIRIZINE HYDROCHLORIDE
  2. ASPIRIN                            /00002701/ [Concomitant]
     Active Substance: ASPIRIN
  3. AMBRISENTAN [Suspect]
     Active Substance: AMBRISENTAN
     Indication: PULMONARY HYPERTENSION
     Dosage: 5 MG, QD
     Route: 065
     Dates: start: 20160222
  4. FAMOTIDINE. [Concomitant]
     Active Substance: FAMOTIDINE
  5. LANOXIN [Concomitant]
     Active Substance: DIGOXIN
  6. REMODULIN [Concomitant]
     Active Substance: TREPROSTINIL
  7. LASIX [Concomitant]
     Active Substance: FUROSEMIDE
  8. SUMATRIPTAN. [Concomitant]
     Active Substance: SUMATRIPTAN
  9. FERROUS SULFATE [Concomitant]
     Active Substance: FERROUS SULFATE\FERROUS SULFATE, DRIED
  10. ADEMPAS [Concomitant]
     Active Substance: RIOCIGUAT
  11. SPIRONOLACTONE. [Concomitant]
     Active Substance: SPIRONOLACTONE
  12. COUMADIN [Concomitant]
     Active Substance: WARFARIN SODIUM
  13. ALBUTEROL                          /00139501/ [Concomitant]
     Active Substance: ALBUTEROL

REACTIONS (5)
  - Injection site swelling [Unknown]
  - Penile swelling [Unknown]
  - Peripheral swelling [Unknown]
  - Local swelling [Unknown]
  - Nasal congestion [Unknown]

NARRATIVE: CASE EVENT DATE: 20160301
